FAERS Safety Report 10035706 (Version 2)
Quarter: 2014Q1

REPORT INFORMATION
  Report Type: Spontaneous
  Country: IT (occurrence: IT)
  Receive Date: 20140325
  Receipt Date: 20140327
  Transmission Date: 20141002
  Serious: Yes (Other)
  Sender: FDA-Public Use
  Company Number: IT-VERTEX PHARMACEUTICALS INC-2014-001452

PATIENT
  Age: 54 Year
  Sex: Female
  Weight: 72 kg

DRUGS (4)
  1. INCIVO [Suspect]
     Indication: ANTIVIRAL TREATMENT
     Dosage: 6 DF, QD
     Route: 048
     Dates: start: 20130523, end: 20130806
  2. COPEGUS [Interacting]
     Indication: ANTIVIRAL PROPHYLAXIS
     Dosage: 3 TABLETS
     Route: 048
     Dates: start: 20130604, end: 20131111
  3. COPEGUS [Interacting]
     Dosage: 5 TABLETS
     Route: 048
     Dates: start: 20130428, end: 20130604
  4. PEGASYS [Interacting]
     Indication: ANTIVIRAL PROPHYLAXIS
     Dosage: 180 ?G, QW
     Route: 058
     Dates: start: 20130428, end: 20131111

REACTIONS (2)
  - Drug interaction [Recovered/Resolved]
  - Pancytopenia [Recovered/Resolved]
